FAERS Safety Report 7797106-6 (Version None)
Quarter: 2011Q4

REPORT INFORMATION
  Report Type: 
  Country: None (occurrence: None)
  Receive Date: 20111003
  Receipt Date: 20110922
  Transmission Date: 20120403
  Serious: Yes (Other)
  Sender: FDA-Public Use
  Company Number: 2011MA014265

PATIENT
  Sex: Female

DRUGS (1)
  1. CITALOPRAM HYDROBROMIDE [Suspect]
     Indication: EPILEPSY

REACTIONS (2)
  - EPILEPSY [None]
  - DRUG INTERACTION [None]
